FAERS Safety Report 5196667-3 (Version None)
Quarter: 2006Q4

REPORT INFORMATION
  Report Type: 
  Country: None (occurrence: None)
  Receive Date: 20061227
  Receipt Date: 20061213
  Transmission Date: 20070319
  Serious: Yes (Hospitalization, Other)
  Sender: FDA-Public Use
  Company Number: 2006094361

PATIENT
  Age: 50 Year
  Sex: Female

DRUGS (3)
  1. CELEBREX [Suspect]
     Indication: ARTHRITIS
     Dosage: 1-3 PER DAY (200 MG, AS NECESSARY), ORAL
     Route: 048
     Dates: start: 20010602, end: 20021001
  2. CELEBREX [Suspect]
     Indication: BACK PAIN
     Dosage: 1-3 PER DAY (200 MG, AS NECESSARY), ORAL
     Route: 048
     Dates: start: 20010602, end: 20021001
  3. BEXTRA [Suspect]
     Indication: BACK PAIN
     Dosage: 1-2 PER DAY (20 MG), ORAL
     Route: 048
     Dates: start: 20041118

REACTIONS (5)
  - ANXIETY [None]
  - CEREBROVASCULAR ACCIDENT [None]
  - HYPERTENSION [None]
  - PANIC DISORDER [None]
  - TRANSIENT ISCHAEMIC ATTACK [None]
